FAERS Safety Report 8472411-9 (Version None)
Quarter: 2012Q2

REPORT INFORMATION
  Report Type: 
  Country: None (occurrence: None)
  Receive Date: 20120627
  Receipt Date: 20110805
  Transmission Date: 20120825
  Serious: No
  Sender: FDA-Public Use
  Company Number: US-AMGEN-USASP2011040268

PATIENT
  Age: 87 Year
  Sex: Female
  Weight: 45.351 kg

DRUGS (8)
  1. LISINOPRIL [Concomitant]
     Dosage: UNK
  2. ARANESP [Concomitant]
     Indication: ANAEMIA
     Dosage: UNK UNK, QMO
     Dates: end: 20110301
  3. COREG [Concomitant]
     Dosage: UNK
  4. NAMENDA [Concomitant]
     Dosage: UNK
  5. ASPIRIN [Concomitant]
     Dosage: 81 MG, QD
  6. LIPITOR [Concomitant]
     Dosage: UNK
  7. PROCRIT [Suspect]
     Indication: RENAL FAILURE CHRONIC
     Dosage: UNK
  8. IRON [Concomitant]
     Dosage: UNK

REACTIONS (1)
  - FATIGUE [None]
